FAERS Safety Report 5871850-X (Version None)
Quarter: 2008Q3

REPORT INFORMATION
  Report Type: 
  Country: None (occurrence: None)
  Receive Date: 20080904
  Receipt Date: 20080904
  Transmission Date: 20090109
  Serious: No
  Sender: FDA-Public Use
  Company Number: None

PATIENT
  Sex: Male
  Weight: 94.9379 kg

DRUGS (1)
  1. VARENICLINE 1.0MG PFIZER [Suspect]
     Indication: SMOKING CESSATION THERAPY
     Dosage: 1.0MG TWICE DAILY PO
     Route: 048
     Dates: start: 20080601, end: 20080630

REACTIONS (2)
  - AFFECTIVE DISORDER [None]
  - DEPRESSION [None]
